FAERS Safety Report 7239262-4 (Version None)
Quarter: 2011Q1

REPORT INFORMATION
  Report Type: 
  Country: None (occurrence: None)
  Receive Date: 20110119
  Receipt Date: 20110119
  Transmission Date: 20110831
  Serious: No
  Sender: FDA-Public Use
  Company Number: None

PATIENT
  Age: 54 Year
  Sex: Male
  Weight: 97.5234 kg

DRUGS (2)
  1. METOCLOPRAMIDE [Suspect]
     Indication: HICCUPS
     Dosage: 10 MG 3 TIMES PER DAY PO
     Route: 048
     Dates: start: 20101103, end: 20101105
  2. METOCLOPRAMIDE [Suspect]
     Indication: GASTROOESOPHAGEAL REFLUX DISEASE
     Dosage: 10 MG 3 TIMES PER DAY PO
     Route: 048
     Dates: start: 20101103, end: 20101105

REACTIONS (2)
  - MUSCLE TWITCHING [None]
  - TARDIVE DYSKINESIA [None]
